FAERS Safety Report 20975411 (Version 2)
Quarter: 2022Q3

REPORT INFORMATION
  Report Type: Spontaneous
  Country: US (occurrence: US)
  Receive Date: 20220617
  Receipt Date: 20220705
  Transmission Date: 20221027
  Serious: Yes (Other)
  Sender: FDA-Public Use
  Company Number: US-GLAXOSMITHKLINE-US2022AMR092927

PATIENT
  Age: 39 Year
  Sex: Female
  Weight: 70.295 kg

DRUGS (4)
  1. LAMICTAL [Suspect]
     Active Substance: LAMOTRIGINE
     Indication: Product used for unknown indication
     Dosage: UNK
  2. GUAIFENESIN [Suspect]
     Active Substance: GUAIFENESIN
     Indication: Product used for unknown indication
     Dosage: UNK
     Dates: start: 20220607, end: 20220619
  3. SUDAFED 12 HOUR [Suspect]
     Active Substance: PSEUDOEPHEDRINE HYDROCHLORIDE
     Indication: Product used for unknown indication
     Dosage: UNK
     Dates: start: 20220606, end: 20220619
  4. PAXLOVID [Suspect]
     Active Substance: NIRMATRELVIR\RITONAVIR
     Indication: COVID-19
     Dosage: UNK
     Dates: start: 20220609, end: 20220610

REACTIONS (9)
  - Stevens-Johnson syndrome [Recovering/Resolving]
  - Drug hypersensitivity [Unknown]
  - Lip swelling [Recovering/Resolving]
  - Lip blister [Unknown]
  - Eye pruritus [Recovering/Resolving]
  - Eye irritation [Recovering/Resolving]
  - Skin burning sensation [Recovering/Resolving]
  - Pruritus [Recovering/Resolving]
  - Lip discolouration [Recovering/Resolving]

NARRATIVE: CASE EVENT DATE: 20220609
